FAERS Safety Report 14400209 (Version 2)
Quarter: 2018Q1

REPORT INFORMATION
  Report Type: Spontaneous
  Country: US (occurrence: US)
  Receive Date: 20180117
  Receipt Date: 20180215
  Transmission Date: 20180509
  Serious: No
  Sender: FDA-Public Use
  Company Number: US-JNJFOC-20171134293

PATIENT
  Age: 48 Year
  Sex: Female
  Weight: 105.24 kg

DRUGS (8)
  1. TRAMADOL. [Concomitant]
     Active Substance: TRAMADOL
     Indication: PAIN
     Dosage: PRIOR TO 21-OCT-2016??FREQUENCY: 3 TABLETS ORALLY THREE TIMES A DAY
     Route: 048
     Dates: start: 20171218
  2. MELOXICAM. [Concomitant]
     Active Substance: MELOXICAM
     Indication: BACK PAIN
     Dosage: 12.5/20 (UNIT UNSPECIFIED) DOSAGE: ONE TABLET ONCE A DAY
     Route: 048
     Dates: start: 20170526
  3. LISINOPRIL AND HYDROCHLOROTHIAZIDE [Concomitant]
     Active Substance: HYDROCHLOROTHIAZIDE\LISINOPRIL
     Indication: HYPERTENSION
     Dosage: 12.5/20 (UNIT UNSPECIFIED)
     Route: 048
     Dates: start: 20170707
  4. METOPROLOL. [Concomitant]
     Active Substance: METOPROLOL
     Route: 048
     Dates: start: 20171107
  5. XARELTO [Suspect]
     Active Substance: RIVAROXABAN
     Indication: ATRIAL FIBRILLATION
     Route: 048
     Dates: start: 20171107, end: 20171116
  6. XARELTO [Suspect]
     Active Substance: RIVAROXABAN
     Indication: CEREBROVASCULAR ACCIDENT PROPHYLAXIS
     Route: 048
     Dates: start: 20171107, end: 20171116
  7. CITALOPRAM [Concomitant]
     Active Substance: CITALOPRAM HYDROBROMIDE
     Indication: DEPRESSION
     Dosage: PRIOR TO 21-OCT-2016
     Route: 048
  8. TRAZODONE [Concomitant]
     Active Substance: TRAZODONE HYDROCHLORIDE
     Indication: INSOMNIA
     Dosage: 12.5/20 (UNIT UNSPECIFIED)??DOSAGE: 1-2 TABLETS AT HOURS OF SLEEP
     Route: 048
     Dates: start: 20170120

REACTIONS (1)
  - Haematuria [Recovered/Resolved with Sequelae]

NARRATIVE: CASE EVENT DATE: 20171115
